FAERS Safety Report 9379012 (Version 2)
Quarter: 2013Q3

REPORT INFORMATION
  Report Type: Spontaneous
  Country: ZA (occurrence: ZA)
  Receive Date: 20130702
  Receipt Date: 20130808
  Transmission Date: 20140515
  Serious: Yes (Hospitalization)
  Sender: FDA-Public Use
  Company Number: ZA-JNJFOC-20130615420

PATIENT
  Age: 43 Year
  Sex: Female
  Weight: 75 kg

DRUGS (9)
  1. REVELLEX [Suspect]
     Indication: RHEUMATOID ARTHRITIS
     Route: 042
     Dates: start: 20130528
  2. REVELLEX [Suspect]
     Indication: RHEUMATOID ARTHRITIS
     Dosage: 1ST INFUSION
     Route: 042
     Dates: start: 20130510
  3. PROZAC [Concomitant]
     Indication: DEPRESSION
     Dosage: TOTAL DOSE: 60 MG IN THE MORNING
     Route: 048
  4. EDRONAX [Concomitant]
     Indication: DEPRESSION
     Dosage: HALF A TABLET OF 4 MG IN THE MORNING
     Route: 048
  5. ELTROXIN [Concomitant]
     Indication: HYPOTHYROIDISM
     Dosage: 1 TABLET IN THE MORNING
     Route: 048
  6. TERTROXIN [Concomitant]
     Indication: HYPOTHYROIDISM
     Dosage: 1 TABLET IN THE MORNING
     Route: 048
  7. GLUCOPHAGE [Concomitant]
     Indication: INSULIN RESISTANCE
     Dosage: 1 TABLET TWICE A DAY
     Route: 048
  8. FOLIC ACID [Concomitant]
     Dosage: ONE TABLET IN THE MORNING
     Route: 048
  9. DORMONOCT [Concomitant]
     Indication: SLEEP DISORDER THERAPY
     Dosage: ONE TABLET AT NIGHT
     Route: 048

REACTIONS (11)
  - Hypoaesthesia [Not Recovered/Not Resolved]
  - Blindness [Recovered/Resolved]
  - Gait disturbance [Recovered/Resolved]
  - Infusion related reaction [Recovered/Resolved]
  - Pruritus [Recovered/Resolved]
  - Local swelling [Recovered/Resolved]
  - Vision blurred [Recovered/Resolved]
  - Urticaria [Recovered/Resolved]
  - Ocular hyperaemia [Recovered/Resolved]
  - Decreased appetite [Not Recovered/Not Resolved]
  - Paraesthesia [Not Recovered/Not Resolved]
